FAERS Safety Report 6433271-0 (Version None)
Quarter: 2009Q4

REPORT INFORMATION
  Report Type: 
  Country: None (occurrence: None)
  Receive Date: 20091109
  Receipt Date: 20091027
  Transmission Date: 20100525
  Serious: Yes (Other)
  Sender: FDA-Public Use
  Company Number: JP-AMGEN-US345320

PATIENT
  Sex: Female

DRUGS (14)
  1. ENBREL [Suspect]
     Indication: RHEUMATOID ARTHRITIS
     Dosage: 25 MG 2X/WEEK, LYOPHILIZED
     Route: 058
     Dates: start: 20080324
  2. PROGRAF [Concomitant]
     Route: 048
     Dates: start: 20060201
  3. BAKTAR [Concomitant]
     Route: 048
     Dates: start: 20060201
  4. LASIX [Concomitant]
     Route: 048
  5. ISCOTIN [Concomitant]
     Route: 048
     Dates: start: 20080324, end: 20090124
  6. BROCIN-CODEINE [Concomitant]
     Dosage: 2 ML
     Route: 048
     Dates: start: 20081023, end: 20081101
  7. SELBEX [Concomitant]
     Route: 048
  8. GASTER [Concomitant]
     Route: 048
  9. BIOFERMIN [Concomitant]
     Route: 048
  10. FOSAMAX [Concomitant]
     Route: 048
  11. LENDORMIN [Concomitant]
     Route: 048
  12. PREDNISOLONE [Concomitant]
     Route: 048
     Dates: end: 20070101
  13. PREDNISOLONE [Concomitant]
     Dosage: UNKNOWN
     Dates: start: 20060201
  14. PYDOXAL [Concomitant]
     Route: 048
     Dates: start: 20080324, end: 20090324

REACTIONS (3)
  - CONDITION AGGRAVATED [None]
  - DERMATOMYOSITIS [None]
  - INTERSTITIAL LUNG DISEASE [None]
